FAERS Safety Report 5427068-8 (Version None)
Quarter: 2007Q3

REPORT INFORMATION
  Report Type: 
  Country: None (occurrence: None)
  Receive Date: 20070828
  Receipt Date: 20070817
  Transmission Date: 20080115
  Serious: Yes (Hospitalization)
  Sender: FDA-Public Use
  Company Number: PHBS2007CN13987

PATIENT
  Age: 56 Year
  Sex: Male

DRUGS (1)
  1. CARBAMAZEPINE [Suspect]
     Indication: TRIGEMINAL NEURALGIA
     Dosage: 0.1 MG, BID
     Route: 065

REACTIONS (6)
  - BIOPSY LUNG ABNORMAL [None]
  - COMPUTERISED TOMOGRAM ABNORMAL [None]
  - COUGH [None]
  - DYSPNOEA EXERTIONAL [None]
  - LUNG INJURY [None]
  - PYREXIA [None]
